FAERS Safety Report 7663007-7 (Version None)
Quarter: 2011Q3

REPORT INFORMATION
  Report Type: 
  Country: None (occurrence: None)
  Receive Date: 20110805
  Receipt Date: 20100804
  Transmission Date: 20111222
  Serious: No
  Sender: FDA-Public Use
  Company Number: US-ABBOTT-10P-163-0662593-00

PATIENT
  Sex: Female

DRUGS (5)
  1. UNKNOWN SLEEPING MEDICATIONS [Concomitant]
     Indication: INSOMNIA
  2. NIASPAN [Suspect]
     Dosage: 1000 MG DAILY AT HOUR OF SLEEP
     Route: 048
     Dates: start: 20100714
  3. ASPIRIN [Concomitant]
     Indication: PRODUCT USED FOR UNKNOWN INDICATION
  4. UNKNOWN MEDICATIONS [Concomitant]
     Indication: PRODUCT USED FOR UNKNOWN INDICATION
     Dosage: TAKES TWELVE UNKNOWN MEDICATIONS OF WHICH TWO OF THEM ARE SLEEPING PILLS.
  5. NIASPAN [Suspect]
     Indication: BLOOD TRIGLYCERIDES INCREASED
     Dosage: 500 MG DAILY AT HOUR OF SLEEP
     Route: 048
     Dates: start: 20100707, end: 20100714

REACTIONS (3)
  - PRURITUS [None]
  - FLUSHING [None]
  - DIZZINESS [None]
